FAERS Safety Report 9290918 (Version 1)
Quarter: 2013Q2

REPORT INFORMATION
  Report Type: Spontaneous
  Country: DE (occurrence: DE)
  Receive Date: 20130515
  Receipt Date: 20130515
  Transmission Date: 20140414
  Serious: Yes (Other)
  Sender: FDA-Public Use
  Company Number: DE-JNJFOC-20130505604

PATIENT
  Sex: 0

DRUGS (3)
  1. CLADRIBINE [Suspect]
     Indication: ACUTE MYELOID LEUKAEMIA RECURRENT
     Dosage: EVERY 12 HOURS ON DAY 1-3
     Route: 065
  2. ARA-C [Suspect]
     Indication: ACUTE MYELOID LEUKAEMIA RECURRENT
     Dosage: 1000 MG/M2 EVERY 12 HOURS ON DAY 1-3;??MAXIMUM DOSE OF 170MG IN 2 PATIENTS
     Route: 065
  3. IDARUBICIN [Suspect]
     Indication: ACUTE MYELOID LEUKAEMIA RECURRENT
     Dosage: PER DAY ON DAYS 1-3
     Route: 065

REACTIONS (6)
  - Infection [Unknown]
  - Hepatotoxicity [Unknown]
  - Neutropenia [Recovered/Resolved]
  - Acute myeloid leukaemia [Unknown]
  - Nausea [Unknown]
  - Diarrhoea [Unknown]
